FAERS Safety Report 9882971 (Version 1)
Quarter: 2014Q1

REPORT INFORMATION
  Report Type: Spontaneous
  Country: FR (occurrence: None)
  Receive Date: 20140204
  Receipt Date: 20140204
  Transmission Date: 20141002
  Serious: Yes (Hospitalization)
  Sender: FDA-Public Use
  Company Number: 2014P1000005

PATIENT
  Age: 58 Year
  Sex: Female

DRUGS (3)
  1. ZOLPIDEM [Suspect]
  2. PAROXETINE [Suspect]
  3. TRIMEPRAZINE [Suspect]

REACTIONS (1)
  - Acute generalised exanthematous pustulosis [None]
